FAERS Safety Report 15124851 (Version 1)
Quarter: 2018Q3

REPORT INFORMATION
  Report Type: Spontaneous
  Country: ES (occurrence: ES)
  Receive Date: 20180710
  Receipt Date: 20180710
  Transmission Date: 20181010
  Serious: Yes (Other)
  Sender: FDA-Public Use
  Company Number: ES-ELI_LILLY_AND_COMPANY-ES201802001289

PATIENT
  Age: 57 Year
  Sex: Female

DRUGS (1)
  1. BARICITINIB [Suspect]
     Active Substance: BARICITINIB
     Indication: RHEUMATOID ARTHRITIS
     Dosage: 4 MG, EVERY 24 HOURS
     Route: 048
     Dates: start: 20171201, end: 20171203

REACTIONS (5)
  - Urinary retention [Recovered/Resolved]
  - Haematoma [Recovered/Resolved]
  - Headache [Recovered/Resolved]
  - Rash erythematous [Recovered/Resolved]
  - Hypertension [Recovered/Resolved]

NARRATIVE: CASE EVENT DATE: 20171202
